FAERS Safety Report 4907976-4 (Version None)
Quarter: 2006Q1

REPORT INFORMATION
  Report Type: 
  Country: None (occurrence: None)
  Receive Date: 20060207
  Receipt Date: 20060127
  Transmission Date: 20060701
  Serious: Yes (Other)
  Sender: FDA-Public Use
  Company Number: 2006-137845-NL

PATIENT
  Age: 21 Year
  Sex: Female
  Weight: 49.9 kg

DRUGS (7)
  1. REMERON SOLTAB [Suspect]
     Indication: ANXIETY
     Dosage: 30 MG QD ORAL
     Route: 048
     Dates: start: 20040101, end: 20040101
  2. REMERON SOLTAB [Suspect]
     Indication: DEPRESSION
     Dosage: 30 MG QD ORAL
     Route: 048
     Dates: start: 20040101, end: 20040101
  3. MIRTAZAPINE [Suspect]
     Indication: ANXIETY
     Dosage: 30 MG DAILY
     Dates: start: 20040101, end: 20050101
  4. MIRTAZAPINE [Suspect]
     Indication: DEPRESSION
     Dosage: 30 MG DAILY
     Dates: start: 20040101, end: 20050101
  5. MIRTAZAPINE [Suspect]
     Indication: ANXIETY
     Dosage: 45 MG DAILY
     Dates: start: 20050101
  6. MIRTAZAPINE [Suspect]
     Indication: DEPRESSION
     Dosage: 45 MG DAILY
     Dates: start: 20050101
  7. XANAX [Concomitant]

REACTIONS (9)
  - BACK PAIN [None]
  - BLOOD PRESSURE SYSTOLIC INCREASED [None]
  - BREAST PAIN [None]
  - DRUG EXPOSURE DURING PREGNANCY [None]
  - HEART RATE INCREASED [None]
  - LOSS OF CONSCIOUSNESS [None]
  - MYOCARDIAL INFARCTION [None]
  - PREGNANCY TEST POSITIVE [None]
  - WEIGHT INCREASED [None]
